FAERS Safety Report 23407032 (Version 1)
Quarter: 2024Q1

REPORT INFORMATION
  Report Type: Spontaneous
  Country: None (occurrence: CH)
  Receive Date: 20240116
  Receipt Date: 20240116
  Transmission Date: 20240410
  Serious: Yes (Hospitalization)
  Sender: FDA-Public Use
  Company Number: CH-ITALFARMACO SPA-2151342

PATIENT
  Age: 70 Year
  Sex: Male
  Weight: 53.1 kg

DRUGS (5)
  1. TIGLUTIK [Suspect]
     Active Substance: RILUZOLE
     Indication: Amyotrophic lateral sclerosis
     Route: 048
     Dates: end: 20231109
  2. DAFALGAN [Suspect]
     Active Substance: ACETAMINOPHEN
     Dates: end: 20231108
  3. DAFALGAN [Suspect]
     Active Substance: ACETAMINOPHEN
     Dates: start: 20231109
  4. CALCIUM\CHOLECALCIFEROL [Concomitant]
     Active Substance: CALCIUM\CHOLECALCIFEROL
  5. MELATONIN [Concomitant]
     Active Substance: MELATONIN

REACTIONS (3)
  - Cholestasis [Recovering/Resolving]
  - Myalgia [Not Recovered/Not Resolved]
  - Arthralgia [Not Recovered/Not Resolved]

NARRATIVE: CASE EVENT DATE: 20231108
